FAERS Safety Report 5588643-3 (Version None)
Quarter: 2008Q1

REPORT INFORMATION
  Report Type: 
  Country: None (occurrence: None)
  Receive Date: 20080111
  Receipt Date: 20080104
  Transmission Date: 20080703
  Serious: Yes (Other)
  Sender: FDA-Public Use
  Company Number: IE-ABBOTT-08P-229-0432279-00

PATIENT
  Sex: Female

DRUGS (1)
  1. KLACID LA [Suspect]
     Indication: TONSILLITIS
     Dates: start: 20071230

REACTIONS (3)
  - DIARRHOEA [None]
  - HEADACHE [None]
  - SOMNOLENCE [None]
